FAERS Safety Report 12243784 (Version 1)
Quarter: 2016Q2

REPORT INFORMATION
  Report Type: Spontaneous
  Country: GB (occurrence: GB)
  Receive Date: 20160406
  Receipt Date: 20160406
  Transmission Date: 20160815
  Serious: Yes (Hospitalization)
  Sender: FDA-Public Use
  Company Number: PHFR2016GB002830

PATIENT
  Age: 21 Year
  Sex: Male

DRUGS (2)
  1. CLOZAPINE. [Suspect]
     Active Substance: CLOZAPINE
     Indication: SCHIZOPHRENIA
     Route: 048
     Dates: start: 201304, end: 201403
  2. ZYPREXA [Concomitant]
     Active Substance: OLANZAPINE
     Indication: PRODUCT USED FOR UNKNOWN INDICATION
     Route: 065

REACTIONS (22)
  - Irritability [Unknown]
  - Hallucination [Unknown]
  - Amnesia [Unknown]
  - Rash [Unknown]
  - Somnolence [Unknown]
  - Restlessness [Unknown]
  - Withdrawal syndrome [Unknown]
  - Psychotic disorder [Unknown]
  - Agitation [Unknown]
  - Peripheral swelling [Unknown]
  - Emotional disorder [Unknown]
  - Tremor [Unknown]
  - Obsessive-compulsive disorder [Unknown]
  - Mania [Unknown]
  - Brain injury [Unknown]
  - Seizure [Unknown]
  - Eye movement disorder [Unknown]
  - Anger [Unknown]
  - Aggression [Unknown]
  - Decreased appetite [Unknown]
  - Localised infection [Unknown]
  - Personality change [Unknown]

NARRATIVE: CASE EVENT DATE: 201304
